FAERS Safety Report 23917182 (Version 1)
Quarter: 2024Q2

REPORT INFORMATION
  Report Type: Spontaneous
  Country: US (occurrence: US)
  Receive Date: 20240529
  Receipt Date: 20240529
  Transmission Date: 20240716
  Serious: Yes (Other)
  Sender: FDA-Public Use
  Company Number: US-Crown Laboratories, Inc.-2157545

PATIENT
  Age: 67 Year
  Sex: Female
  Weight: 72.727 kg

DRUGS (1)
  1. DESENEX (MICONAZOLE NITRATE) [Suspect]
     Active Substance: MICONAZOLE NITRATE
     Route: 061
     Dates: start: 20240509, end: 20240509

REACTIONS (7)
  - Accidental exposure to product [Not Recovered/Not Resolved]
  - Crying [Recovered/Resolved with Sequelae]
  - Vision blurred [Not Recovered/Not Resolved]
  - Photophobia [Not Recovered/Not Resolved]
  - Ocular hyperaemia [Not Recovered/Not Resolved]
  - Eye irritation [Not Recovered/Not Resolved]
  - Eye discharge [Not Recovered/Not Resolved]

NARRATIVE: CASE EVENT DATE: 20240510
